FAERS Safety Report 5840831-4 (Version None)
Quarter: 2008Q3

REPORT INFORMATION
  Report Type: 
  Country: None (occurrence: None)
  Receive Date: 20080730
  Receipt Date: 20080603
  Transmission Date: 20090109
  Serious: Yes (Other)
  Sender: FDA-Public Use
  Company Number: PHEH2008US05055

PATIENT
  Age: 61 Year
  Sex: Male
  Weight: 87.1 kg

DRUGS (1)
  1. TEKTURNA [Suspect]
     Indication: HYPERTENSION
     Dosage: 150 MG, QD, ORAL
     Route: 048
     Dates: start: 20080403, end: 20080410

REACTIONS (3)
  - ANGIOEDEMA [None]
  - LIP SWELLING [None]
  - PHARYNGEAL OEDEMA [None]
